FAERS Safety Report 5910242-1 (Version None)
Quarter: 2008Q4

REPORT INFORMATION
  Report Type: 
  Country: None (occurrence: None)
  Receive Date: 20081007
  Receipt Date: 20071030
  Transmission Date: 20090506
  Serious: No
  Sender: FDA-Public Use
  Company Number: US-ASTRAZENECA-2007UW25170

PATIENT
  Age: 64 Year
  Sex: Female
  Weight: 64.4 kg

DRUGS (9)
  1. ARIMIDEX [Suspect]
     Indication: BREAST CANCER
     Route: 048
     Dates: start: 20031001
  2. NEXIUM [Concomitant]
     Route: 048
  3. CARAFATE [Concomitant]
  4. ATIVAN [Concomitant]
  5. TENORMIN [Concomitant]
     Route: 048
  6. DIOVAN [Concomitant]
  7. HYDROCHLOROTHIAZIDE [Concomitant]
  8. VYTORIN [Concomitant]
  9. ACTINAL [Concomitant]

REACTIONS (1)
  - STOMATITIS [None]
